FAERS Safety Report 20768697 (Version 1)
Quarter: 2022Q2

REPORT INFORMATION
  Report Type: Spontaneous
  Country: US (occurrence: US)
  Receive Date: 20220429
  Receipt Date: 20220429
  Transmission Date: 20220721
  Serious: Yes (Hospitalization)
  Sender: FDA-Public Use
  Company Number: US-ELI_LILLY_AND_COMPANY-US202204008479

PATIENT
  Age: 61 Year
  Sex: Male

DRUGS (2)
  1. HUMALOG [Suspect]
     Active Substance: INSULIN LISPRO
     Indication: Type 1 diabetes mellitus
     Dosage: 20 U, QID (15-20 UNITS 3-4 TIMES PER DAY)
     Route: 065
  2. LANTUS [Concomitant]
     Active Substance: INSULIN GLARGINE
     Indication: Product used for unknown indication
     Dosage: 40 U, DAILY (NIGHT)

REACTIONS (10)
  - Lumbar vertebral fracture [Recovered/Resolved]
  - Hip fracture [Recovered/Resolved]
  - Pelvic fracture [Recovered/Resolved]
  - Fall [Recovered/Resolved]
  - Nerve compression [Not Recovered/Not Resolved]
  - Nerve injury [Not Recovered/Not Resolved]
  - Gastrointestinal disorder [Recovered/Resolved]
  - Constipation [Recovered/Resolved]
  - Gait disturbance [Not Recovered/Not Resolved]
  - Pain [Unknown]

NARRATIVE: CASE EVENT DATE: 20180108
